FAERS Safety Report 15678459 (Version 1)
Quarter: 2018Q4

REPORT INFORMATION
  Report Type: Spontaneous
  Country: US (occurrence: US)
  Receive Date: 20181201
  Receipt Date: 20181201
  Transmission Date: 20190205
  Serious: No
  Sender: FDA-Public Use
  Company Number: US-ASTRAZENECA-2018SF48577

PATIENT
  Age: 25731 Day
  Sex: Female

DRUGS (1)
  1. BYETTA [Suspect]
     Active Substance: EXENATIDE
     Dosage: TWO TIMES A DAY
     Route: 065

REACTIONS (2)
  - Blood glucose fluctuation [Unknown]
  - Mental disorder [Unknown]

NARRATIVE: CASE EVENT DATE: 20181105
